FAERS Safety Report 5226814-6 (Version None)
Quarter: 2007Q1

REPORT INFORMATION
  Report Type: 
  Country: None (occurrence: None)
  Receive Date: 20070201
  Receipt Date: 20070122
  Transmission Date: 20070707
  Serious: Yes (Other)
  Sender: FDA-Public Use
  Company Number: JP-ABBOTT-07P-087-0356598-00

PATIENT
  Sex: Female

DRUGS (1)
  1. TRICOR [Suspect]
     Indication: HYPERLIPIDAEMIA
     Route: 048
     Dates: start: 20060731

REACTIONS (2)
  - HEPATIC FUNCTION ABNORMAL [None]
  - HYPERTRIGLYCERIDAEMIA [None]
